FAERS Safety Report 6310032-4 (Version None)
Quarter: 2009Q3

REPORT INFORMATION
  Report Type: 
  Country: None (occurrence: None)
  Receive Date: 20090811
  Receipt Date: 20090729
  Transmission Date: 20100115
  Serious: Yes (Hospitalization)
  Sender: FDA-Public Use
  Company Number: 430052K09USA

PATIENT
  Age: 48 Year
  Sex: Male

DRUGS (4)
  1. NOVANTRONE [Suspect]
     Indication: MULTIPLE SCLEROSIS
     Dates: start: 20090706
  2. COPAXONE [Suspect]
     Indication: MULTIPLE SCLEROSIS
     Dosage: 20 MG, SUBCUTANEOUS
     Route: 058
     Dates: start: 20090706
  3. 4-AMINOPYRIDINE (FAMPRIDINE) [Suspect]
     Indication: GAIT DISTURBANCE
     Dates: start: 20090706
  4. 4-AMINOPYRIDINE (FAMPRIDINE) [Suspect]
     Indication: MULTIPLE SCLEROSIS
     Dates: start: 20090706

REACTIONS (1)
  - CONVULSION [None]
